FAERS Safety Report 19745899 (Version 5)
Quarter: 2022Q4

REPORT INFORMATION
  Report Type: Report from Study
  Country: GB (occurrence: GB)
  Receive Date: 20210825
  Receipt Date: 20221201
  Transmission Date: 20230112
  Serious: Yes (Hospitalization)
  Sender: FDA-Public Use
  Company Number: NVSC2021GB156075

PATIENT
  Age: 80 Year
  Sex: Male
  Weight: 65 kg

DRUGS (14)
  1. RAMIPRIL [Suspect]
     Active Substance: RAMIPRIL
     Indication: Hypertension
     Dosage: 10 MG, QD
     Route: 048
     Dates: end: 20210630
  2. RAMIPRIL [Suspect]
     Active Substance: RAMIPRIL
     Indication: Prophylaxis
  3. INCLISIRAN [Suspect]
     Active Substance: INCLISIRAN
     Indication: Arteriosclerosis
     Dosage: UNK
     Route: 058
     Dates: start: 20190705
  4. INCLISIRAN [Suspect]
     Active Substance: INCLISIRAN
     Indication: Arteriosclerosis
     Dosage: 300 MG
     Route: 058
     Dates: start: 20191009, end: 20191009
  5. INCLISIRAN [Suspect]
     Active Substance: INCLISIRAN
     Dosage: 300 MG
     Route: 058
     Dates: start: 20200311, end: 20200311
  6. INCLISIRAN [Suspect]
     Active Substance: INCLISIRAN
     Dosage: 300 MG
     Route: 058
     Dates: start: 20200902, end: 20200902
  7. INCLISIRAN [Suspect]
     Active Substance: INCLISIRAN
     Dosage: 300 MG
     Route: 058
     Dates: start: 20210310
  8. RANITIDINE [Concomitant]
     Active Substance: RANITIDINE
     Indication: Product used for unknown indication
     Dosage: UNK
     Route: 065
     Dates: start: 20180808, end: 20200821
  9. ATENOLOL [Concomitant]
     Active Substance: ATENOLOL
     Indication: Hypertension
     Dosage: 25 MG, QD
     Route: 048
  10. ATENOLOL [Concomitant]
     Active Substance: ATENOLOL
     Indication: Prophylaxis
  11. ASPIRIN [Concomitant]
     Active Substance: ASPIRIN
     Indication: Prophylaxis
     Dosage: 75 MG, QD
     Route: 048
  12. ATORVASTATIN [Concomitant]
     Active Substance: ATORVASTATIN
     Indication: Hyperlipidaemia
     Dosage: 40 MG, QD
     Route: 048
  13. ATORVASTATIN [Concomitant]
     Active Substance: ATORVASTATIN
     Indication: Prophylaxis
  14. AMLODIPINE [Concomitant]
     Active Substance: AMLODIPINE BESYLATE
     Indication: Hypertension
     Dosage: 5 MG, QD
     Route: 048

REACTIONS (1)
  - Acute kidney injury [Recovering/Resolving]

NARRATIVE: CASE EVENT DATE: 20210630
